FAERS Safety Report 4908077-1 (Version None)
Quarter: 2006Q1

REPORT INFORMATION
  Report Type: 
  Country: None (occurrence: None)
  Receive Date: 20060210
  Receipt Date: 20050928
  Transmission Date: 20060701
  Serious: Yes (Hospitalization, Disabling)
  Sender: FDA-Public Use
  Company Number: US-ROCHE-419578

PATIENT
  Age: 22 Year
  Sex: Male
  Weight: 62.1 kg

DRUGS (1)
  1. ACCUTANE [Suspect]
     Indication: ACNE
     Route: 048
     Dates: start: 19840715, end: 19841215

REACTIONS (31)
  - ANAEMIA [None]
  - ANHEDONIA [None]
  - ANXIETY [None]
  - ARTHRALGIA [None]
  - BACTERIA STOOL IDENTIFIED [None]
  - BLOOD IRON DECREASED [None]
  - CHRONIC FATIGUE SYNDROME [None]
  - COLITIS ULCERATIVE [None]
  - CROHN'S DISEASE [None]
  - DEPRESSION [None]
  - DUODENITIS [None]
  - ECONOMIC PROBLEM [None]
  - GASTRIC DISORDER [None]
  - GASTRITIS [None]
  - GASTROINTESTINAL DISORDER [None]
  - GASTROINTESTINAL NECROSIS [None]
  - GASTROOESOPHAGEAL REFLUX DISEASE [None]
  - HYPOGLYCAEMIA [None]
  - IMPAIRED GASTRIC EMPTYING [None]
  - INFLAMMATORY BOWEL DISEASE [None]
  - INTESTINAL HAEMORRHAGE [None]
  - INTESTINAL OBSTRUCTION [None]
  - IRRITABLE BOWEL SYNDROME [None]
  - PAIN [None]
  - PANCREATITIS [None]
  - PEPTIC ULCER [None]
  - POSTOPERATIVE ABSCESS [None]
  - RENAL DISORDER [None]
  - SERUM FERRITIN DECREASED [None]
  - VARICOCELE [None]
  - WEIGHT DECREASED [None]
